FAERS Safety Report 15733439 (Version 1)
Quarter: 2018Q4

REPORT INFORMATION
  Report Type: Spontaneous
  Country: FR (occurrence: FR)
  Receive Date: 20181218
  Receipt Date: 20181218
  Transmission Date: 20190205
  Serious: Yes (Hospitalization)
  Sender: FDA-Public Use
  Company Number: FR-TEVA-2018-FR-986834

PATIENT
  Age: 70 Year
  Sex: Female
  Weight: 40 kg

DRUGS (8)
  1. FLUOROURACIL. [Suspect]
     Active Substance: FLUOROURACIL
     Indication: CHOLANGIOCARCINOMA
     Dosage: CUMULATIVE DOSE  29232 MG
     Route: 041
     Dates: start: 20180710, end: 20181017
  2. LASILIX FAIBLE 20 MG, COMPRIM? [Concomitant]
     Active Substance: FUROSEMIDE
     Dosage: 20 MILLIGRAM DAILY;
     Route: 048
  3. CHOLURSO 500 MG, COMPRIM? PELLICUL? [Concomitant]
     Dosage: 500 MILLIGRAM DAILY; 500MG MORNING AND 250 MG EVENING
     Route: 048
  4. ALDACTONE [Concomitant]
     Active Substance: SPIRONOLACTONE
     Dosage: 50 MILLIGRAM DAILY;
  5. PANTOPRAZOLE ARROW 40 MG, COMPRIM? GASTRO-R?SISTANT [Concomitant]
     Dosage: 40 MILLIGRAM DAILY;
     Route: 048
  6. OXALIPLATIN. [Suspect]
     Active Substance: OXALIPLATIN
     Indication: CHOLANGIOCARCINOMA
     Dosage: CUMULATIVE DOSE 382 MG
     Route: 041
     Dates: start: 20180710, end: 20181017
  7. CREON [Concomitant]
     Active Substance: PANCRELIPASE AMYLASE\PANCRELIPASE LIPASE\PANCRELIPASE PROTEASE
     Dosage: 50000 IU (INTERNATIONAL UNIT) DAILY;
  8. LASILIX 40 MG, COMPRIM? S?CABLE [Concomitant]
     Active Substance: FUROSEMIDE
     Dosage: 40 MILLIGRAM DAILY;

REACTIONS (3)
  - Weight decreased [Not Recovered/Not Resolved]
  - Diarrhoea [Recovered/Resolved]
  - Vomiting [Recovered/Resolved]

NARRATIVE: CASE EVENT DATE: 20181017
